FAERS Safety Report 8584532-0 (Version None)
Quarter: 2012Q3

REPORT INFORMATION
  Report Type: 
  Country: None (occurrence: None)
  Receive Date: 20120810
  Receipt Date: 20120807
  Transmission Date: 20120928
  Serious: No
  Sender: FDA-Public Use
  Company Number: US-PFIZER INC-2012193311

PATIENT
  Age: 33 Year
  Sex: Female
  Weight: 68.027 kg

DRUGS (13)
  1. PREMARIN [Suspect]
     Dosage: 0.9 MG, DAILY
     Route: 048
  2. ESTROVEN [Suspect]
     Indication: SLEEP DISORDER
  3. NAPROXEN (ALEVE) [Concomitant]
     Indication: MIGRAINE
     Dosage: 220 MG, AS NEEDED
  4. BENADRYL [Suspect]
     Indication: SLEEP DISORDER
     Dosage: UNK
     Dates: start: 20120101, end: 20120101
  5. BLACK COHOSH [Suspect]
     Indication: WEIGHT INCREASED
  6. ESTROVEN [Suspect]
     Indication: HOT FLUSH
     Dosage: UNK
     Dates: start: 20120101
  7. ESTROVEN [Suspect]
     Indication: NIGHT SWEATS
  8. ESTROVEN [Suspect]
     Indication: WEIGHT INCREASED
  9. BLACK COHOSH [Suspect]
     Indication: SLEEP DISORDER
  10. PREMARIN [Suspect]
     Dosage: 1.25 MG, DAILY
     Route: 048
     Dates: end: 20120101
  11. BLACK COHOSH [Suspect]
     Indication: HOT FLUSH
     Dosage: UNK
     Dates: start: 20120101
  12. PREMARIN [Suspect]
     Indication: HORMONE REPLACEMENT THERAPY
     Dosage: 0.45 MG, DAILY
     Route: 048
     Dates: start: 20060101
  13. BLACK COHOSH [Suspect]
     Indication: NIGHT SWEATS

REACTIONS (6)
  - HOT FLUSH [None]
  - INSOMNIA [None]
  - DRUG INEFFECTIVE [None]
  - WEIGHT INCREASED [None]
  - SOMNOLENCE [None]
  - NIGHT SWEATS [None]
